FAERS Safety Report 4539357-X (Version None)
Quarter: 2004Q4

REPORT INFORMATION
  Report Type: 
  Country: None (occurrence: None)
  Receive Date: 20041223
  Receipt Date: 20030611
  Transmission Date: 20050328
  Serious: No
  Sender: FDA-Public Use
  Company Number: US-JNJFOC-20041201514

PATIENT
  Sex: Female

DRUGS (5)
  1. MOTRIN [Suspect]
     Indication: ARTHRALGIA
     Dosage: ORAL
     Route: 048
  2. PERCOCET [Suspect]
     Indication: ARTHRALGIA
     Dosage: ORAL
     Route: 048
  3. FLUTICASONE PROPIONATE [Concomitant]
  4. SINGULAIR [Concomitant]
  5. ELAVIL [Concomitant]

REACTIONS (1)
  - GASTRIC DISORDER [None]
